FAERS Safety Report 15660361 (Version 3)
Quarter: 2019Q1

REPORT INFORMATION
  Report Type: Spontaneous
  Country: US (occurrence: US)
  Receive Date: 20181127
  Receipt Date: 20190307
  Transmission Date: 20190417
  Serious: Yes (Hospitalization, Other)
  Sender: FDA-Public Use
  Company Number: US-GLAXOSMITHKLINE-US2018209931

PATIENT
  Age: 64 Year
  Sex: Female

DRUGS (2)
  1. ADVAIR DISKUS [Suspect]
     Active Substance: FLUTICASONE PROPIONATE\SALMETEROL XINAFOATE
     Indication: PRODUCT USED FOR UNKNOWN INDICATION
     Dosage: 1 PUFF(S), BID
     Route: 055
  2. ADVAIR DISKUS [Suspect]
     Active Substance: FLUTICASONE PROPIONATE\SALMETEROL XINAFOATE
     Dosage: 250/50UG
     Route: 055
     Dates: start: 2013

REACTIONS (9)
  - Vascular graft [Not Recovered/Not Resolved]
  - Mitral valve repair [Not Recovered/Not Resolved]
  - Myocardial infarction [Unknown]
  - Coronary artery bypass [Unknown]
  - Cardiomegaly [Not Recovered/Not Resolved]
  - Cardiac disorder [Unknown]
  - Cardiac operation [Unknown]
  - Ill-defined disorder [Unknown]
  - Post procedural infection [Unknown]

NARRATIVE: CASE EVENT DATE: 201810
